FAERS Safety Report 5028097-9 (Version None)
Quarter: 2006Q2

REPORT INFORMATION
  Report Type: 
  Country: None (occurrence: None)
  Receive Date: 20060609
  Receipt Date: 20060601
  Transmission Date: 20061013
  Serious: Yes (Hospitalization)
  Sender: FDA-Public Use
  Company Number: URSO-2006-010-F-UP 1

PATIENT
  Age: 64 Year
  Sex: Female
  Weight: 108.8633 kg

DRUGS (2)
  1. URSO 250 [Suspect]
     Indication: HEPATITIS
     Dosage: PO
     Route: 048
  2. PROCRIT [Concomitant]

REACTIONS (3)
  - LEUKOPENIA [None]
  - MYELODYSPLASTIC SYNDROME [None]
  - SEPSIS [None]
